FAERS Safety Report 24547034 (Version 1)
Quarter: 2024Q4

REPORT INFORMATION
  Report Type: Spontaneous
  Country: US (occurrence: US)
  Receive Date: 20241025
  Receipt Date: 20241025
  Transmission Date: 20250115
  Serious: No
  Sender: AMGEN
  Company Number: US-AMGEN-USASP2024209802

PATIENT
  Sex: Female

DRUGS (8)
  1. TAVNEOS [Suspect]
     Active Substance: AVACOPAN
     Indication: Arteritis
     Dosage: UNK
     Route: 065
  2. TAVNEOS [Suspect]
     Active Substance: AVACOPAN
     Indication: Arterial disorder
  3. TAVNEOS [Suspect]
     Active Substance: AVACOPAN
     Indication: Anti-neutrophil cytoplasmic antibody positive vasculitis
  4. FAMOTIDINE [Concomitant]
     Active Substance: FAMOTIDINE
     Dosage: UNK
     Route: 065
  5. FUROSEMIDE [Concomitant]
     Active Substance: FUROSEMIDE
     Dosage: UNK
     Route: 065
  6. LEVOTHYROXINE [Concomitant]
     Active Substance: LEVOTHYROXINE
     Dosage: UNK
     Route: 065
  7. CARVEDILOL [Concomitant]
     Active Substance: CARVEDILOL
     Indication: Blood pressure abnormal
  8. MYCOPHENOLIC ACID [Concomitant]
     Active Substance: MYCOPHENOLIC ACID
     Dosage: UNK

REACTIONS (4)
  - Vision blurred [Unknown]
  - Diarrhoea [Unknown]
  - Headache [Unknown]
  - Nausea [Unknown]
